FAERS Safety Report 5839372-X (Version None)
Quarter: 2008Q3

REPORT INFORMATION
  Report Type: 
  Country: None (occurrence: None)
  Receive Date: 20080806
  Receipt Date: 20080723
  Transmission Date: 20090109
  Serious: Yes (Other)
  Sender: FDA-Public Use
  Company Number: DSJ-2008-09470

PATIENT
  Age: 61 Year
  Sex: Male

DRUGS (5)
  1. OLMESARTAN MEDOXOMIL [Suspect]
     Indication: HYPERTENSION
     Dosage: 20 MG (20 MG, 1 IN 1 D), PER ORAL, 40 MG
     Route: 048
     Dates: end: 20080701
  2. OLMESARTAN MEDOXOMIL [Suspect]
     Indication: HYPERTENSION
     Dosage: 20 MG (20 MG, 1 IN 1 D), PER ORAL, 40 MG
     Route: 048
     Dates: start: 20080702, end: 20080723
  3. NORVASC [Concomitant]
  4. FLUSTAN [Concomitant]
  5. HALCION [Concomitant]

REACTIONS (6)
  - DIABETIC NEPHROPATHY [None]
  - DIALYSIS [None]
  - DYSARTHRIA [None]
  - HYPOAESTHESIA [None]
  - HYPOGLYCAEMIA [None]
  - RENAL FAILURE CHRONIC [None]
